FAERS Safety Report 4359160-3 (Version None)
Quarter: 2004Q2

REPORT INFORMATION
  Report Type: 
  Country: None (occurrence: None)
  Receive Date: 20040512
  Receipt Date: 20040427
  Transmission Date: 20050107
  Serious: Yes (Hospitalization)
  Sender: FDA-Public Use
  Company Number: US_991130673

PATIENT
  Age: 72 Year
  Sex: Male
  Weight: 114 kg

DRUGS (7)
  1. HUMULIN 70/30 [Suspect]
     Indication: DIABETES MELLITUS
     Dosage: 25 U/L IN THE MORNING
     Dates: start: 19970501
  2. HUMULIN R [Suspect]
     Indication: DIABETES MELLITUS
     Dosage: 10 U/L IN THE EVENING
     Dates: start: 19970501
  3. HUMULIN N [Suspect]
     Indication: DIABETES MELLITUS
     Dosage: 10 U/L AT BEDTIME
     Dates: start: 19970501
  4. TOPROL-XL [Concomitant]
  5. PROCARDIA XL [Concomitant]
  6. MINITRAN (GLYCERYL TRINITRATE) [Concomitant]
  7. LOPID [Concomitant]

REACTIONS (4)
  - BLOOD CHOLESTEROL INCREASED [None]
  - BLOOD GLUCOSE INCREASED [None]
  - CORONARY ARTERY OCCLUSION [None]
  - PHARMACEUTICAL PRODUCT COMPLAINT [None]
